FAERS Safety Report 19218644 (Version 1)
Quarter: 2021Q2

REPORT INFORMATION
  Report Type: Spontaneous
  Country: CA (occurrence: CA)
  Receive Date: 20210505
  Receipt Date: 20210505
  Transmission Date: 20210717
  Serious: Yes (Other)
  Sender: FDA-Public Use
  Company Number: CA-LUPIN PHARMACEUTICALS INC.-2021-05946

PATIENT
  Age: 17 Year
  Sex: Male

DRUGS (4)
  1. PENTOBARBITAL. [Concomitant]
     Active Substance: PENTOBARBITAL
     Indication: INTRACRANIAL PRESSURE INCREASED
     Dosage: 100 MILLIGRAM (THREE BOLUSES OF OVER HALF A DAY)
     Route: 065
  2. PENTOBARBITAL. [Concomitant]
     Active Substance: PENTOBARBITAL
     Dosage: 2 MILLIGRAM/KILOGRAM (CONTINUOUS INFUSION FOR 1 HR)
     Route: 065
  3. PENTOBARBITAL. [Concomitant]
     Active Substance: PENTOBARBITAL
     Dosage: 0.5 MILLIGRAM/KILOGRAM (CONTINUOUS INFUSION FOR 1 HR)
     Route: 065
  4. POTASSIUM CHLORIDE. [Suspect]
     Active Substance: POTASSIUM CHLORIDE
     Indication: HYPOKALAEMIA
     Dosage: UNK
     Route: 065

REACTIONS (1)
  - Drug ineffective [Unknown]
